FAERS Safety Report 22161822 (Version 6)
Quarter: 2023Q2

REPORT INFORMATION
  Report Type: Report from Study
  Country: JP (occurrence: None)
  Receive Date: 20230331
  Receipt Date: 20230606
  Transmission Date: 20230722
  Serious: Yes (Hospitalization)
  Sender: FDA-Public Use
  Company Number: JP-Eisai Medical Research-EC-2023-137188

PATIENT
  Age: 62 Year
  Sex: Male
  Weight: 51.6 kg

DRUGS (10)
  1. LENVATINIB [Suspect]
     Active Substance: LENVATINIB
     Indication: Clear cell renal cell carcinoma
     Route: 048
     Dates: start: 20230317, end: 20230322
  2. LENVATINIB [Suspect]
     Active Substance: LENVATINIB
     Route: 048
     Dates: start: 20230407, end: 20230427
  3. QUAVONLIMAB [Suspect]
     Active Substance: QUAVONLIMAB
     Indication: Clear cell renal cell carcinoma
     Dosage: QUAVONLIMAB 25 MG PLUS PEMBROLIZUMAB 400 MG
     Route: 042
     Dates: start: 20230317, end: 20230317
  4. PEMBROLIZUMAB [Suspect]
     Active Substance: PEMBROLIZUMAB
     Dosage: QUAVONLIMAB 25 MG PLUS PEMBROLIZUMAB 400 MG
     Route: 042
     Dates: start: 20230428, end: 20230428
  5. TRAMADOL [Concomitant]
     Active Substance: TRAMADOL
     Dates: start: 20230314, end: 20230324
  6. CALONAL [Concomitant]
     Active Substance: ACETAMINOPHEN
     Dates: start: 202302, end: 20230324
  7. NAPROXEN [Concomitant]
     Active Substance: NAPROXEN
     Dates: start: 20230314, end: 20230324
  8. SYMPROIC [Concomitant]
     Active Substance: NALDEMEDINE
     Dates: start: 20230314, end: 20230322
  9. METOCLOPRAMIDE [Concomitant]
     Active Substance: METOCLOPRAMIDE
     Dates: start: 20230318, end: 20230324
  10. AMLODIPINE [Concomitant]
     Active Substance: AMLODIPINE BESYLATE
     Dates: start: 20230322, end: 20230322

REACTIONS (3)
  - Dehydration [Recovered/Resolved]
  - Hydronephrosis [Recovered/Resolved]
  - Anaemia [Recovered/Resolved]

NARRATIVE: CASE EVENT DATE: 20230323
